FAERS Safety Report 5032231-4 (Version None)
Quarter: 2006Q2

REPORT INFORMATION
  Report Type: 
  Country: None (occurrence: None)
  Receive Date: 20060619
  Receipt Date: 20060612
  Transmission Date: 20061013
  Serious: Yes (Hospitalization)
  Sender: FDA-Public Use
  Company Number: 2006074739

PATIENT
  Age: 3 Month
  Sex: Male
  Weight: 5 kg

DRUGS (1)
  1. SUDAFED 12 HOUR [Suspect]
     Indication: NASAL CONGESTION
     Dosage: 1 ML EVERY 8 HOURS, ORAL
     Route: 048
     Dates: start: 20060606

REACTIONS (1)
  - HAEMATOCHEZIA [None]
